FAERS Safety Report 6773142-3 (Version None)
Quarter: 2010Q2

REPORT INFORMATION
  Report Type: 
  Country: None (occurrence: None)
  Receive Date: 20100616
  Receipt Date: 20090825
  Transmission Date: 20101027
  Serious: No
  Sender: FDA-Public Use
  Company Number: US-TYCO HEALTHCARE/MALLINCKRODT-T200901627

PATIENT
  Sex: Female

DRUGS (4)
  1. ULTRATAG [Suspect]
     Indication: RADIOISOTOPE SCAN
     Dosage: UNK
     Dates: start: 20090825, end: 20090825
  2. ULTRATAG [Suspect]
     Dosage: UNK
     Dates: start: 20090828, end: 20090828
  3. ULTRA-TECHNEKOW [Concomitant]
     Indication: RADIOISOTOPE SCAN
     Dosage: UNK MCI, SINGLE
     Dates: start: 20090825, end: 20090825
  4. ULTRA-TECHNEKOW [Concomitant]
     Dosage: UNK MCI, SINGLE
     Dates: start: 20090828, end: 20090828

REACTIONS (1)
  - DRUG INEFFECTIVE [None]
